FAERS Safety Report 4431078-7 (Version None)
Quarter: 2004Q3

REPORT INFORMATION
  Report Type: 
  Country: None (occurrence: None)
  Receive Date: 20040817
  Receipt Date: 20040811
  Transmission Date: 20050211
  Serious: Yes (Life-Threatening)
  Sender: FDA-Public Use
  Company Number: 2004CG01605

PATIENT
  Age: 57 Year
  Sex: Female
  Weight: 67 kg

DRUGS (6)
  1. OMEPRAZOLE [Suspect]
  2. TERCIAN [Suspect]
  3. KREDEX [Suspect]
  4. ZYPREXA [Suspect]
     Dosage: 5 MG QD PO
     Route: 048
  5. TRIATEC [Concomitant]
  6. FEMARA [Concomitant]

REACTIONS (9)
  - BLOOD CREATININE INCREASED [None]
  - BLOOD POTASSIUM INCREASED [None]
  - DIABETIC KETOACIDOSIS [None]
  - HEPATIC STEATOSIS [None]
  - HYPOALBUMINAEMIA [None]
  - HYPOPROTEINAEMIA [None]
  - HYPOVOLAEMIC SHOCK [None]
  - PANCREATITIS ACUTE [None]
  - PANCREATITIS NECROTISING [None]
